FAERS Safety Report 25203691 (Version 1)
Quarter: 2025Q2

REPORT INFORMATION
  Report Type: Spontaneous
  Country: US (occurrence: US)
  Receive Date: 20250416
  Receipt Date: 20250416
  Transmission Date: 20250717
  Serious: No
  Sender: SANOFI AVENTIS
  Company Number: US-SA-2025SA109125

PATIENT
  Sex: Male
  Weight: 147.73 kg

DRUGS (15)
  1. DUPIXENT [Suspect]
     Active Substance: DUPILUMAB
     Indication: Dermatitis atopic
     Dosage: 300 MG, QOW
     Route: 058
     Dates: start: 2024
  2. BETAMETHASONE [Concomitant]
     Active Substance: BETAMETHASONE
  3. TACROLIMUS [Concomitant]
     Active Substance: TACROLIMUS
  4. KETOCONAZOLE [Concomitant]
     Active Substance: KETOCONAZOLE
  5. METFORMIN [Concomitant]
     Active Substance: METFORMIN HYDROCHLORIDE
  6. BACLOFEN [Concomitant]
     Active Substance: BACLOFEN
  7. OMEPRAZOLE [Concomitant]
     Active Substance: OMEPRAZOLE
  8. WARFARIN [Concomitant]
     Active Substance: WARFARIN
  9. OXYCODONE [Concomitant]
     Active Substance: OXYCODONE
  10. AMLODIPINE [Concomitant]
     Active Substance: AMLODIPINE BESYLATE
  11. GABAPENTIN [Concomitant]
     Active Substance: GABAPENTIN
  12. LOSARTAN [Concomitant]
     Active Substance: LOSARTAN
  13. SPIRIVA [Concomitant]
     Active Substance: TIOTROPIUM BROMIDE MONOHYDRATE
  14. PRAVASTATIN [Concomitant]
     Active Substance: PRAVASTATIN
  15. BUDESONIDE\FORMOTEROL [Concomitant]
     Active Substance: BUDESONIDE\FORMOTEROL

REACTIONS (3)
  - Dermatitis atopic [Not Recovered/Not Resolved]
  - Rash erythematous [Not Recovered/Not Resolved]
  - Drug ineffective [Unknown]
